FAERS Safety Report 5317759-1 (Version None)
Quarter: 2007Q2

REPORT INFORMATION
  Report Type: 
  Country: None (occurrence: None)
  Receive Date: 20070502
  Receipt Date: 20070502
  Transmission Date: 20071010
  Serious: Yes (Hospitalization)
  Sender: FDA-Public Use
  Company Number: None

PATIENT
  Age: 66 Year
  Sex: Male

DRUGS (1)
  1. WARFARIN SODIUM [Suspect]
     Indication: ARTERIAL BYPASS OPERATION
     Dosage: 5MG   EVERY DAY  PO
     Route: 048
     Dates: start: 20061212, end: 20061229

REACTIONS (1)
  - GASTROINTESTINAL HAEMORRHAGE [None]
